FAERS Safety Report 18793706 (Version 2)
Quarter: 2022Q1

REPORT INFORMATION
  Report Type: Other
  Country: IR (occurrence: None)
  Receive Date: 20210127
  Receipt Date: 20220201
  Transmission Date: 20220423
  Serious: Yes (Other)
  Sender: FDA-Public Use
  Company Number: IR-ROCHE-2754766

PATIENT
  Age: 95 Day
  Sex: Female

DRUGS (3)
  1. BEVACIZUMAB [Suspect]
     Active Substance: BEVACIZUMAB
     Indication: Retinopathy of prematurity
     Route: 050
  2. TETRACAINE [Concomitant]
     Active Substance: TETRACAINE
  3. BETADINE [Concomitant]
     Active Substance: POVIDONE-IODINE

REACTIONS (3)
  - Blindness [Unknown]
  - Off label use [Unknown]
  - Off label use [Unknown]
